FAERS Safety Report 25248985 (Version 2)
Quarter: 2025Q4

REPORT INFORMATION
  Report Type: Report from Study
  Country: US (occurrence: None)
  Receive Date: 20250429
  Receipt Date: 20251128
  Transmission Date: 20260117
  Serious: Yes (Other)
  Sender: UCB
  Company Number: US-UCBSA-2025024672

PATIENT
  Age: 14 Year
  Weight: 61.2 kg

DRUGS (1)
  1. FENFLURAMINE [Suspect]
     Active Substance: FENFLURAMINE
     Indication: Lennox-Gastaut syndrome
     Dosage: 0.45 MILLIGRAM/KILOGRAM/DAY (TOTALLY 27.72 MILLIGRAM PER DAY)

REACTIONS (2)
  - Tricuspid valve incompetence [Unknown]
  - Mitral valve incompetence [Unknown]
